FAERS Safety Report 15104131 (Version 2)
Quarter: 2018Q3

REPORT INFORMATION
  Report Type: Spontaneous
  Country: US (occurrence: US)
  Receive Date: 20180703
  Receipt Date: 20180706
  Transmission Date: 20181010
  Serious: Yes (Death, Other)
  Sender: FDA-Public Use
  Company Number: US-SUNOVION-2018SUN002635

PATIENT
  Sex: Male
  Weight: 157.37 kg

DRUGS (11)
  1. OMEPRAZOLE. [Concomitant]
     Active Substance: OMEPRAZOLE
     Indication: GASTROOESOPHAGEAL REFLUX DISEASE
  2. FLECAINIDE [Concomitant]
     Active Substance: FLECAINIDE
     Indication: ARRHYTHMIA
  3. TAMSULOSIN [Concomitant]
     Active Substance: TAMSULOSIN
     Indication: BENIGN PROSTATIC HYPERPLASIA
  4. GLYCOPYRROLATE. [Concomitant]
     Active Substance: GLYCOPYRROLATE
     Indication: CHRONIC OBSTRUCTIVE PULMONARY DISEASE
     Dosage: 25 ?G, BID
     Route: 055
     Dates: start: 20180515
  5. ALBUTEROL. [Concomitant]
     Active Substance: ALBUTEROL
     Indication: CHRONIC OBSTRUCTIVE PULMONARY DISEASE
     Dosage: UNK
     Dates: start: 20161101
  6. ELIQUIS [Concomitant]
     Active Substance: APIXABAN
     Indication: CARDIAC PACEMAKER INSERTION
     Dosage: UNK
     Dates: start: 20170907
  7. BROVANA [Suspect]
     Active Substance: ARFORMOTEROL TARTRATE
     Indication: CHRONIC OBSTRUCTIVE PULMONARY DISEASE
     Dosage: 15 ?G, BID
     Route: 055
     Dates: start: 20161101
  8. SERTRALINE [Concomitant]
     Active Substance: SERTRALINE HYDROCHLORIDE
     Indication: DEPRESSION
  9. METOPROLOL. [Concomitant]
     Active Substance: METOPROLOL
     Indication: HYPERTENSION
  10. LIPITOR [Concomitant]
     Active Substance: ATORVASTATIN CALCIUM
     Indication: HYPERLIPIDAEMIA
  11. TRAMADOL. [Concomitant]
     Active Substance: TRAMADOL
     Indication: PAIN

REACTIONS (2)
  - Respiratory arrest [Fatal]
  - Cardiac arrest [Fatal]
